FAERS Safety Report 25103779 (Version 1)
Quarter: 2025Q1

REPORT INFORMATION
  Report Type: Spontaneous
  Country: FR (occurrence: FR)
  Receive Date: 20250321
  Receipt Date: 20250321
  Transmission Date: 20250409
  Serious: Yes (Life-Threatening, Hospitalization, Other)
  Sender: AUROBINDO
  Company Number: FR-PFIZER INC-2013251576

PATIENT
  Age: 72 Year
  Sex: Male

DRUGS (20)
  1. MEROPENEM [Suspect]
     Active Substance: MEROPENEM
     Indication: Urinary tract infection
     Dosage: 2 GRAM, ONCE A DAY (1 G, 2X/DAY)
     Route: 042
     Dates: start: 20130524, end: 20130613
  2. TORISEL [Suspect]
     Active Substance: TEMSIROLIMUS
     Indication: Renal cancer
     Route: 041
     Dates: start: 20130531, end: 20130531
  3. TACROLIMUS [Suspect]
     Active Substance: TACROLIMUS
     Indication: Product used for unknown indication
     Dosage: 1 MILLIGRAM, ONCE A DAY (1 MG, 1X/DAY)
     Route: 048
  4. ZOVIRAX [Concomitant]
     Active Substance: ACYCLOVIR
     Indication: Mucosal inflammation
     Route: 065
     Dates: start: 20130614
  5. AMLODIPINE BESYLATE [Concomitant]
     Active Substance: AMLODIPINE BESYLATE
     Indication: Product used for unknown indication
     Route: 065
  6. RAMIPRIL [Concomitant]
     Active Substance: RAMIPRIL
     Indication: Product used for unknown indication
     Route: 065
  7. BISOPROLOL FUMARATE [Concomitant]
     Active Substance: BISOPROLOL FUMARATE
     Indication: Product used for unknown indication
     Route: 065
  8. KARDEGIC [Concomitant]
     Active Substance: ASPIRIN DL-LYSINE
     Indication: Product used for unknown indication
     Route: 065
  9. ESOMEPRAZOLE [Concomitant]
     Active Substance: ESOMEPRAZOLE
     Indication: Product used for unknown indication
     Route: 065
  10. PRAVASTATIN SODIUM [Concomitant]
     Active Substance: PRAVASTATIN SODIUM
     Indication: Product used for unknown indication
     Route: 065
  11. SILODOSIN [Concomitant]
     Active Substance: SILODOSIN
     Indication: Product used for unknown indication
     Route: 065
  12. ALBUTEROL [Concomitant]
     Active Substance: ALBUTEROL
     Indication: Product used for unknown indication
     Route: 065
  13. MYFORTIC [Concomitant]
     Active Substance: MYCOPHENOLATE SODIUM
     Indication: Product used for unknown indication
     Route: 065
  14. LEVOFLOXACIN [Concomitant]
     Active Substance: LEVOFLOXACIN
     Indication: Product used for unknown indication
     Route: 065
     Dates: start: 20130513
  15. CEFTRIAXONE SODIUM [Concomitant]
     Active Substance: CEFTRIAXONE SODIUM
     Indication: Product used for unknown indication
     Route: 065
     Dates: start: 20130520
  16. Loxen [Concomitant]
     Indication: Product used for unknown indication
     Route: 065
     Dates: start: 20130521
  17. FUROSEMIDE [Concomitant]
     Active Substance: FUROSEMIDE
     Indication: Product used for unknown indication
     Route: 065
     Dates: start: 20130601
  18. ACUPAN [Concomitant]
     Active Substance: NEFOPAM HYDROCHLORIDE
     Indication: Product used for unknown indication
     Route: 065
     Dates: start: 20130516
  19. INVANZ [Concomitant]
     Active Substance: ERTAPENEM SODIUM
     Indication: Product used for unknown indication
     Dosage: 1 GRAM, ONCE A DAY (1 G, /24H)
     Route: 065
     Dates: start: 20130523
  20. AMIKACIN [Concomitant]
     Active Substance: AMIKACIN
     Indication: Product used for unknown indication
     Route: 065
     Dates: start: 20130523

REACTIONS (4)
  - Thrombotic microangiopathy [Unknown]
  - Bronchial obstruction [Unknown]
  - Herpes virus infection [Unknown]
  - Neoplasm progression [Unknown]

NARRATIVE: CASE EVENT DATE: 20130101
